FAERS Safety Report 8229775-0 (Version None)
Quarter: 2012Q1

REPORT INFORMATION
  Report Type: 
  Country: None (occurrence: None)
  Receive Date: 20120322
  Receipt Date: 20120316
  Transmission Date: 20120608
  Serious: Yes (Hospitalization)
  Sender: FDA-Public Use
  Company Number: US-GILEAD-2010-0029175

PATIENT
  Age: 36 Year
  Sex: Female

DRUGS (6)
  1. NORGESTREL/ETHINYL ESTRADIOL [Concomitant]
     Indication: CONTRACEPTION
  2. TENOFOVIR DISOPROXIL FUMARATE [Suspect]
     Indication: PROPHYLAXIS AGAINST HIV INFECTION
     Route: 048
     Dates: start: 20100304, end: 20100401
  3. ACETAMINOPHEN [Concomitant]
     Indication: MALAISE
  4. METRONIDAZOLE [Concomitant]
     Indication: ABDOMINAL PAIN
  5. OMEPRAZOLE [Concomitant]
     Indication: PEPTIC ULCER
  6. CLOTRIMAZOLE VAG PESSARIES [Concomitant]

REACTIONS (3)
  - PREGNANCY [None]
  - MATERNAL EXPOSURE DURING PREGNANCY [None]
  - ABORTION SPONTANEOUS [None]
